FAERS Safety Report 15821564 (Version 1)
Quarter: 2019Q1

REPORT INFORMATION
  Report Type: Spontaneous
  Country: US (occurrence: US)
  Receive Date: 20190111
  Receipt Date: 20190111
  Transmission Date: 20190417
  Serious: No
  Sender: FDA-Public Use
  Company Number: None

PATIENT

DRUGS (4)
  1. CYCLOPHOSPHAMIDE. [Suspect]
     Active Substance: CYCLOPHOSPHAMIDE
     Dates: end: 20181212
  2. CARBOPLATIN. [Suspect]
     Active Substance: CARBOPLATIN
     Dates: end: 20181226
  3. PACLITAXEL. [Suspect]
     Active Substance: PACLITAXEL
  4. DOXORUBICIN HYDROCHLORIDE. [Suspect]
     Active Substance: DOXORUBICIN HYDROCHLORIDE
     Dates: end: 20181212

REACTIONS (10)
  - Nausea [None]
  - Visual impairment [None]
  - Asthenia [None]
  - Intracardiac thrombus [None]
  - Feeling abnormal [None]
  - Lacunar infarction [None]
  - Malaise [None]
  - Supraventricular tachycardia [None]
  - Cerebellar infarction [None]
  - Stenosis [None]

NARRATIVE: CASE EVENT DATE: 20190102
